FAERS Safety Report 11566258 (Version 1)
Quarter: 2015Q3

REPORT INFORMATION
  Report Type: Spontaneous
  Country: US (occurrence: US)
  Receive Date: 20150916
  Receipt Date: 20150916
  Transmission Date: 20151125
  Serious: No
  Sender: FDA-Public Use
  Company Number: US-ELI_LILLY_AND_COMPANY-US200906000372

PATIENT
  Age: 83 Year
  Sex: Female
  Weight: 57.6 kg

DRUGS (6)
  1. FORTEO [Suspect]
     Active Substance: TERIPARATIDE
     Dosage: UNK, UNK
     Dates: start: 200809, end: 200905
  2. ASPIRIN. [Concomitant]
     Active Substance: ASPIRIN
  3. HYDROCHLOROTHIAZIDE. [Concomitant]
     Active Substance: HYDROCHLOROTHIAZIDE
  4. CORTICOSTEROIDS [Concomitant]
     Active Substance: CORTICOSTEROID NOS
  5. VITAMIN B12 [Concomitant]
     Active Substance: CYANOCOBALAMIN
  6. AMITIZA [Concomitant]
     Active Substance: LUBIPROSTONE
     Indication: CONSTIPATION

REACTIONS (13)
  - Myalgia [Not Recovered/Not Resolved]
  - Pain [Unknown]
  - Asthenia [Unknown]
  - Breath sounds abnormal [Unknown]
  - Pain in extremity [Unknown]
  - Frustration [Unknown]
  - Fatigue [Unknown]
  - Arthralgia [Unknown]
  - Insomnia [Unknown]
  - Tenderness [Unknown]
  - Muscle tightness [Unknown]
  - Scoliosis [Unknown]
  - Muscle spasms [Not Recovered/Not Resolved]

NARRATIVE: CASE EVENT DATE: 200904
